FAERS Safety Report 21003304 (Version 1)
Quarter: 2022Q2

REPORT INFORMATION
  Report Type: Spontaneous
  Country: JP (occurrence: JP)
  Receive Date: 20220624
  Receipt Date: 20220624
  Transmission Date: 20220720
  Serious: Yes (Hospitalization, Other)
  Sender: FDA-Public Use
  Company Number: JP-MLMSERVICE-20220614-3614778-1

PATIENT
  Age: 87 Year
  Sex: Female
  Weight: 37.2 kg

DRUGS (11)
  1. FUROSEMIDE [Suspect]
     Active Substance: FUROSEMIDE
     Indication: Product used for unknown indication
  2. CARVEDILOL [Suspect]
     Active Substance: CARVEDILOL
     Indication: Product used for unknown indication
  3. TOZINAMERAN [Suspect]
     Active Substance: TOZINAMERAN
     Indication: COVID-19 immunisation
     Dosage: 2 TOTAL
  4. TRICHLORMETHIAZIDE [Suspect]
     Active Substance: TRICHLORMETHIAZIDE
     Indication: Product used for unknown indication
  5. TELMISARTAN [Suspect]
     Active Substance: TELMISARTAN
     Indication: Product used for unknown indication
  6. ASPIRIN [Concomitant]
     Active Substance: ASPIRIN
  7. ROSUVASTATIN [Concomitant]
     Active Substance: ROSUVASTATIN
  8. TOLVAPTAN [Concomitant]
     Active Substance: TOLVAPTAN
  9. LANSOPRAZOLE [Concomitant]
     Active Substance: LANSOPRAZOLE
  10. ALLOPURINOL [Concomitant]
     Active Substance: ALLOPURINOL
  11. NIFEDIPINE [Concomitant]
     Active Substance: NIFEDIPINE

REACTIONS (5)
  - Hypotension [Unknown]
  - Bradycardia [Unknown]
  - Uraemic encephalopathy [Recovering/Resolving]
  - Acute kidney injury [Recovered/Resolved]
  - Hyperkalaemia [Unknown]
